FAERS Safety Report 7111417-9 (Version None)
Quarter: 2010Q4

REPORT INFORMATION
  Report Type: 
  Country: None (occurrence: None)
  Receive Date: 20101118
  Receipt Date: 20100302
  Transmission Date: 20110411
  Serious: Yes (Other)
  Sender: FDA-Public Use
  Company Number: US-PFIZER INC-2010027872

PATIENT

DRUGS (1)
  1. LINEZOLID [Suspect]
     Indication: OSTEOMYELITIS

REACTIONS (1)
  - OPTIC NEURITIS [None]
